FAERS Safety Report 12759068 (Version 1)
Quarter: 2016Q3

REPORT INFORMATION
  Report Type: Spontaneous
  Country: GB (occurrence: GB)
  Receive Date: 20160919
  Receipt Date: 20160919
  Transmission Date: 20161109
  Serious: Yes (Hospitalization)
  Sender: FDA-Public Use
  Company Number: GB-PFIZER INC-2016428818

PATIENT
  Age: 73 Year
  Sex: Male

DRUGS (7)
  1. GARLIC /01570501/ [Concomitant]
     Active Substance: GARLIC
  2. BENDROFLUMETHIAZIDE [Concomitant]
     Active Substance: BENDROFLUMETHIAZIDE
  3. IBUPROFEN. [Suspect]
     Active Substance: IBUPROFEN
     Indication: INFLAMMATORY PAIN
     Dosage: OCCASIONALLY 3 TIMES A DAY
     Route: 048
     Dates: end: 20160421
  4. COD LIVER OIL [Concomitant]
     Active Substance: COD LIVER OIL
  5. PRAVASTATIN. [Concomitant]
     Active Substance: PRAVASTATIN
  6. TAMSULOSIN [Concomitant]
     Active Substance: TAMSULOSIN
  7. CRANBERRY. [Concomitant]
     Active Substance: CRANBERRY

REACTIONS (5)
  - Dizziness [Unknown]
  - Cold sweat [Unknown]
  - Chest discomfort [Unknown]
  - Acute myocardial infarction [Recovered/Resolved with Sequelae]
  - Acute coronary syndrome [Unknown]

NARRATIVE: CASE EVENT DATE: 20160421
